FAERS Safety Report 12012712 (Version 1)
Quarter: 2016Q1

REPORT INFORMATION
  Report Type: Report from Study
  Country: US (occurrence: US)
  Receive Date: 20160205
  Receipt Date: 20160205
  Transmission Date: 20160526
  Serious: Yes (Other)
  Sender: FDA-Public Use
  Company Number: US-GILEAD-2016-0196125

PATIENT
  Age: 52 Year
  Sex: Female
  Weight: 65.31 kg

DRUGS (2)
  1. LASIX [Concomitant]
     Active Substance: FUROSEMIDE
     Indication: PRODUCT USED FOR UNKNOWN INDICATION
     Dosage: UNK
     Route: 065
  2. LEDIPASVIR/SOFOSBUVIR [Suspect]
     Active Substance: LEDIPASVIR\SOFOSBUVIR
     Indication: HEPATITIS C
     Dosage: 1 DF, QD
     Route: 048
     Dates: start: 20150901, end: 20151201

REACTIONS (15)
  - Flatulence [Unknown]
  - Hepatomegaly [Unknown]
  - Memory impairment [Unknown]
  - Seizure [Unknown]
  - Feeling abnormal [Unknown]
  - Unevaluable event [Unknown]
  - Constipation [Unknown]
  - Nausea [Unknown]
  - Migraine [Unknown]
  - Incoherent [Unknown]
  - Decreased appetite [Unknown]
  - Weight decreased [Unknown]
  - Crying [Unknown]
  - Emotional disorder [Unknown]
  - Abdominal pain upper [Unknown]
